FAERS Safety Report 5679150-8 (Version None)
Quarter: 2008Q1

REPORT INFORMATION
  Report Type: 
  Country: None (occurrence: None)
  Receive Date: 20080325
  Receipt Date: 20080313
  Transmission Date: 20080703
  Serious: Yes (Other)
  Sender: FDA-Public Use
  Company Number: CH-SANOFI-SYNTHELABO-A01200803095

PATIENT
  Age: 57 Year
  Sex: Female

DRUGS (3)
  1. XYZAL [Interacting]
     Indication: RHINITIS ALLERGIC
     Dosage: 5 MG
     Route: 048
     Dates: start: 20080114, end: 20080114
  2. PLAQUENIL [Interacting]
     Indication: RHEUMATOID ARTHRITIS
     Route: 048
     Dates: start: 20080107, end: 20080111
  3. METHOTREXATE [Suspect]
     Route: 048
     Dates: start: 20071201

REACTIONS (4)
  - AMNESIA [None]
  - DRUG INTERACTION [None]
  - ROAD TRAFFIC ACCIDENT [None]
  - SOMNOLENCE [None]
